FAERS Safety Report 7428671-6 (Version None)
Quarter: 2011Q2

REPORT INFORMATION
  Report Type: 
  Country: None (occurrence: None)
  Receive Date: 20110421
  Receipt Date: 20110414
  Transmission Date: 20111010
  Serious: No
  Sender: FDA-Public Use
  Company Number: US-BIOGENIDEC-2011BI014083

PATIENT
  Sex: Female

DRUGS (1)
  1. AVONEX [Suspect]
     Indication: MULTIPLE SCLEROSIS
     Route: 030
     Dates: start: 20020101

REACTIONS (6)
  - TENSION HEADACHE [None]
  - MULTIPLE SCLEROSIS RELAPSE [None]
  - PERONEAL NERVE PALSY [None]
  - HYPOAESTHESIA [None]
  - FALL [None]
  - MUSCULAR WEAKNESS [None]
